FAERS Safety Report 13291113 (Version 1)
Quarter: 2017Q1

REPORT INFORMATION
  Report Type: Spontaneous
  Country: FR (occurrence: FR)
  Receive Date: 20170302
  Receipt Date: 20170302
  Transmission Date: 20170428
  Serious: Yes (Hospitalization)
  Sender: FDA-Public Use
  Company Number: FR-PFIZER INC-2017089183

PATIENT
  Age: 85 Year
  Sex: Female

DRUGS (14)
  1. JANUVIA [Concomitant]
     Active Substance: SITAGLIPTIN PHOSPHATE
  2. MEDIATENSYL /00631801/ [Concomitant]
     Active Substance: URAPIDIL
  3. LYRICA [Suspect]
     Active Substance: PREGABALIN
     Dosage: 50 MG, 2X/DAY
     Route: 048
  4. GINKGO EXTRACT\HEPTAMINOL\TROXERUTIN [Suspect]
     Active Substance: GINKGO\HEPTAMINOL\TROXERUTIN
     Indication: HAEMORRHOIDS
     Dosage: 1 DF, 1X/DAY
     Route: 048
     Dates: end: 201701
  5. MELAXOSE [Suspect]
     Active Substance: LACTULOSE\PARAFFIN
     Indication: CONSTIPATION
     Dosage: 1 DF, 2X/DAY
     Route: 048
     Dates: end: 201701
  6. VALSARTAN. [Concomitant]
     Active Substance: VALSARTAN
  7. ASPIRINE PROTECT [Concomitant]
     Active Substance: ASPIRIN
  8. CERIS [Suspect]
     Active Substance: TROSPIUM CHLORIDE
     Indication: URINARY INCONTINENCE
     Dosage: 20 MG, 1X/DAY
     Route: 048
     Dates: end: 201701
  9. CRESTOR [Concomitant]
     Active Substance: ROSUVASTATIN CALCIUM
  10. ZOPICLONE [Suspect]
     Active Substance: ZOPICLONE
     Dosage: PROGRESSIVE DOSE DECREASE
     Route: 048
     Dates: start: 201701, end: 20170118
  11. BISOPROLOL HEMIFUMARATE [Concomitant]
     Active Substance: BISOPROLOL FUMARATE
  12. ESOMEPRAZOLE [Concomitant]
     Active Substance: ESOMEPRAZOLE
  13. ZOPICLONE [Suspect]
     Active Substance: ZOPICLONE
     Indication: INSOMNIA
     Dosage: 7.5 MG, 1X/DAY
     Route: 048
  14. SPAGULAX [Suspect]
     Active Substance: PLANTAGO OVATA SEED
     Indication: CONSTIPATION
     Dosage: 1 DF, 3X/DAY
     Route: 048
     Dates: end: 201701

REACTIONS (5)
  - Incoherent [Unknown]
  - Fall [Recovered/Resolved]
  - Hallucination [Recovered/Resolved]
  - Craniocerebral injury [Recovered/Resolved]
  - Contusion [Unknown]

NARRATIVE: CASE EVENT DATE: 20170112
